FAERS Safety Report 6852040-0 (Version None)
Quarter: 2010Q3

REPORT INFORMATION
  Report Type: 
  Country: None (occurrence: None)
  Receive Date: 20100717
  Receipt Date: 20071107
  Transmission Date: 20110219
  Serious: No
  Sender: FDA-Public Use
  Company Number: US-PFIZER INC-2007094982

PATIENT
  Sex: Female
  Weight: 72.7 kg

DRUGS (3)
  1. CHANTIX [Suspect]
     Indication: SMOKING CESSATION THERAPY
     Dates: start: 20071021
  2. BENICAR [Concomitant]
     Indication: HYPERTENSION
  3. DETROL LA [Concomitant]
     Indication: HYPERTONIC BLADDER

REACTIONS (3)
  - FATIGUE [None]
  - FEELING ABNORMAL [None]
  - INSOMNIA [None]
